FAERS Safety Report 18010714 (Version 5)
Quarter: 2020Q4

REPORT INFORMATION
  Report Type: Report from Study
  Country: HU (occurrence: HU)
  Receive Date: 20200710
  Receipt Date: 20201127
  Transmission Date: 20210113
  Serious: Yes (Other)
  Sender: FDA-Public Use
  Company Number: NVSC2020HU194852

PATIENT
  Sex: Female

DRUGS (3)
  1. BAF312 [Suspect]
     Active Substance: SIPONIMOD
     Indication: PRODUCT USED FOR UNKNOWN INDICATION
     Dosage: UNK
     Route: 065
     Dates: start: 2020
  2. GILENYA [Suspect]
     Active Substance: FINGOLIMOD HYDROCHLORIDE
     Indication: RELAPSING-REMITTING MULTIPLE SCLEROSIS
     Dosage: UNK
     Route: 065
     Dates: start: 201805
  3. GILENYA [Suspect]
     Active Substance: FINGOLIMOD HYDROCHLORIDE
     Dosage: UNK
     Route: 065
     Dates: end: 2020

REACTIONS (6)
  - Ataxia [Unknown]
  - Blood pressure increased [Unknown]
  - Secondary progressive multiple sclerosis [Unknown]
  - Expanded disability status scale score increased [Unknown]
  - Drug ineffective [Unknown]
  - Muscular weakness [Unknown]
